FAERS Safety Report 17936572 (Version 1)
Quarter: 2020Q2

REPORT INFORMATION
  Report Type: Report from Study
  Country: GB (occurrence: GB)
  Receive Date: 20200624
  Receipt Date: 20200624
  Transmission Date: 20200714
  Serious: Yes (Hospitalization, Other)
  Sender: FDA-Public Use
  Company Number: GB-IPSEN BIOPHARMACEUTICALS, INC.-2019-07283

PATIENT
  Age: 75 Year
  Sex: Female

DRUGS (3)
  1. SOMATULINE AUTOGEL [Suspect]
     Active Substance: LANREOTIDE ACETATE
     Indication: NEUROENDOCRINE TUMOUR
     Dosage: 120MG/0.5ML
     Route: 058
     Dates: end: 2020
  2. SOMATULINE AUTOGEL [Suspect]
     Active Substance: LANREOTIDE ACETATE
     Indication: OFF LABEL USE
  3. SOMATULINE AUTOGEL [Suspect]
     Active Substance: LANREOTIDE ACETATE
     Indication: RECTAL CANCER

REACTIONS (17)
  - Terminal state [Not Recovered/Not Resolved]
  - Swelling face [Unknown]
  - Liver disorder [Unknown]
  - General physical health deterioration [Unknown]
  - Dyspnoea [Unknown]
  - Pruritus [Not Recovered/Not Resolved]
  - Injection site discomfort [Not Recovered/Not Resolved]
  - Off label use [Unknown]
  - Face injury [Unknown]
  - Cachexia [Not Recovered/Not Resolved]
  - Fall [Unknown]
  - Contusion [Unknown]
  - Abdominal distension [Unknown]
  - Hospitalisation [Unknown]
  - Product dose omission [Unknown]
  - Lower respiratory tract infection [Unknown]
  - Confusional state [Not Recovered/Not Resolved]

NARRATIVE: CASE EVENT DATE: 2019
